FAERS Safety Report 22068243 (Version 1)
Quarter: 2023Q1

REPORT INFORMATION
  Report Type: Report from Study
  Country: US (occurrence: US)
  Receive Date: 20230307
  Receipt Date: 20230307
  Transmission Date: 20230418
  Serious: Yes (Life-Threatening, Hospitalization)
  Sender: FDA-Public Use
  Company Number: US-ABBVIE-4130018

PATIENT
  Age: 79 Year
  Sex: Male
  Weight: 78.5 kg

DRUGS (5)
  1. VENETOCLAX [Suspect]
     Active Substance: VENETOCLAX
     Indication: Mantle cell lymphoma
     Route: 048
     Dates: start: 20220608, end: 20220808
  2. POLATUZUMAB VEDOTIN [Concomitant]
     Active Substance: POLATUZUMAB VEDOTIN
     Indication: Mantle cell lymphoma
     Route: 042
     Dates: start: 20220608, end: 20220720
  3. RITUXIMAB [Concomitant]
     Active Substance: RITUXIMAB
     Indication: Mantle cell lymphoma
     Route: 042
     Dates: start: 20220629, end: 20220720
  4. RITUXIMAB [Concomitant]
     Active Substance: RITUXIMAB
     Indication: Mantle cell lymphoma
     Dosage: TIME INTERVAL: TOTAL
     Route: 041
     Dates: start: 20220608
  5. HYALURONIDASE [Concomitant]
     Active Substance: HYALURONIDASE
     Indication: Mantle cell lymphoma
     Route: 042
     Dates: start: 20220629, end: 20220720

REACTIONS (8)
  - Respiratory failure [Unknown]
  - Pneumonia [Unknown]
  - Dyspnoea [Unknown]
  - Acute respiratory failure [Unknown]
  - Septic shock [Unknown]
  - Pneumonia [Unknown]
  - Pancytopenia [Unknown]
  - Pseudomonal bacteraemia [Unknown]

NARRATIVE: CASE EVENT DATE: 20220808
